FAERS Safety Report 5625206-5 (Version None)
Quarter: 2008Q1

REPORT INFORMATION
  Report Type: 
  Country: None (occurrence: None)
  Receive Date: 20080124
  Receipt Date: 20080110
  Transmission Date: 20080703
  Serious: Yes (Death, Hospitalization, Disabling)
  Sender: FDA-Public Use
  Company Number: THYM-11636

PATIENT
  Age: 70 Year
  Sex: Male

DRUGS (7)
  1. THYMOGLOBULIN [Suspect]
     Indication: APLASTIC ANAEMIA
     Dosage: 2.5 MG/KG, QD; INTRAVENOUS, 3.5 MG/KG, QD, INTRAVENOUS
     Route: 042
     Dates: start: 20070213, end: 20070217
  2. THYMOGLOBULIN [Suspect]
     Indication: APLASTIC ANAEMIA
     Dosage: 2.5 MG/KG, QD; INTRAVENOUS, 3.5 MG/KG, QD, INTRAVENOUS
     Route: 042
     Dates: start: 20070725, end: 20070729
  3. CYCLOSPORINE [Concomitant]
  4. OMEPRAZOLE [Concomitant]
  5. VORICONAZOLE           (VORICONAZOLE) [Concomitant]
  6. G-CSF                (GRANULOCYTE COLONY STIMULATING FACTOR) [Concomitant]
  7. .......................... [Concomitant]

REACTIONS (4)
  - CREUTZFELDT-JAKOB DISEASE [None]
  - ENCEPHALOPATHY [None]
  - NERVE ROOT LESION [None]
  - THERAPEUTIC RESPONSE DECREASED [None]
